FAERS Safety Report 7366000-7 (Version None)
Quarter: 2011Q1

REPORT INFORMATION
  Report Type: 
  Country: None (occurrence: None)
  Receive Date: 20110322
  Receipt Date: 20110310
  Transmission Date: 20110831
  Serious: Yes (Death, Life-Threatening, Other)
  Sender: FDA-Public Use
  Company Number: GR-CUBIST-2011S1000081

PATIENT
  Age: 68 Year
  Sex: Female

DRUGS (7)
  1. TIOTROPIUM BROMIDE [Concomitant]
     Route: 065
     Dates: start: 20090101, end: 20110204
  2. TINZAPARIN SODIUM [Concomitant]
     Route: 065
     Dates: start: 20110128, end: 20110204
  3. CUBICIN [Suspect]
     Indication: PERIPHERAL ISCHAEMIA
     Route: 042
     Dates: start: 20110203, end: 20110204
  4. SALMETEROL [Concomitant]
     Route: 065
     Dates: start: 20090101, end: 20110204
  5. AMIODARONE HCL [Concomitant]
     Route: 065
     Dates: start: 20100101, end: 20110204
  6. PIPERACILLIN [Concomitant]
     Route: 065
     Dates: start: 20110128, end: 20110204
  7. INSULIN GLARGINE [Concomitant]
     Route: 065
     Dates: end: 20110204

REACTIONS (6)
  - METABOLIC ACIDOSIS [None]
  - RENAL FAILURE [None]
  - COMA [None]
  - COMPARTMENT SYNDROME [None]
  - ASPARTATE AMINOTRANSFERASE INCREASED [None]
  - SHOCK [None]
